FAERS Safety Report 23242698 (Version 1)
Quarter: 2023Q4

REPORT INFORMATION
  Report Type: Spontaneous
  Country: US (occurrence: US)
  Receive Date: 20231129
  Receipt Date: 20231129
  Transmission Date: 20240110
  Serious: No
  Sender: FDA-Public Use
  Company Number: US-BAUSCH-BL-2023-017373

PATIENT
  Age: 74 Year
  Sex: Female

DRUGS (1)
  1. JUBLIA [Suspect]
     Active Substance: EFINACONAZOLE
     Indication: Onychomycosis
     Dosage: APPLY TOPICALLY TO EFFECTED NAILS DAILY (PATIENT HAD BOTH GREAT TOES EFFECTED)
     Route: 061

REACTIONS (1)
  - Application site discolouration [Unknown]
